FAERS Safety Report 26034564 (Version 1)
Quarter: 2025Q4

REPORT INFORMATION
  Report Type: Spontaneous
  Country: US (occurrence: None)
  Receive Date: 20251111
  Receipt Date: 20251111
  Transmission Date: 20260118
  Serious: No
  Sender: FDA-CTU
  Company Number: None

PATIENT
  Age: 41 Year
  Sex: Male
  Weight: 65.25 kg

DRUGS (13)
  1. XCOPRI [Suspect]
     Active Substance: CENOBAMATE
     Indication: Seizure
     Dosage: 1 TABLET(S) TWICE A DAY ORAL
     Route: 048
     Dates: start: 20250505
  2. LAMICTAL [Concomitant]
     Active Substance: LAMOTRIGINE
  3. atorvorstatin [Concomitant]
  4. ADVAIR HFA [Concomitant]
     Active Substance: FLUTICASONE PROPIONATE\SALMETEROL XINAFOATE
  5. alubeterol [Concomitant]
  6. LORAZEPAM [Concomitant]
     Active Substance: LORAZEPAM
  7. VITAMINS [Concomitant]
     Active Substance: VITAMINS
  8. viviscal [Concomitant]
  9. BERBERINE [Concomitant]
     Active Substance: BERBERINE
  10. cho bindhoff [Concomitant]
  11. cholestoff [Concomitant]
  12. qualia mind [Concomitant]
  13. BIOTIN [Concomitant]
     Active Substance: BIOTIN

REACTIONS (4)
  - Abdominal discomfort [None]
  - Abdominal distension [None]
  - Flatulence [None]
  - Diarrhoea [None]

NARRATIVE: CASE EVENT DATE: 20250701
